FAERS Safety Report 10742196 (Version 1)
Quarter: 2015Q1

REPORT INFORMATION
  Report Type: Spontaneous
  Country: US (occurrence: None)
  Receive Date: 20150123
  Receipt Date: 20150123
  Transmission Date: 20150721
  Serious: No
  Sender: FDA-Public Use
  Company Number: None

PATIENT
  Age: 39 Year
  Sex: Female
  Weight: 63.5 kg

DRUGS (1)
  1. AMPHETAMINE SALT [Suspect]
     Active Substance: AMPHETAMINE ASPARTATE\AMPHETAMINE SULFATE\DEXTROAMPHETAMINE SACCHARATE\DEXTROAMPHETAMINE SULFATE
     Dosage: TAKEN BY MOUTH
     Dates: start: 20150115, end: 20150122

REACTIONS (12)
  - Drug ineffective [None]
  - Performance status decreased [None]
  - Headache [None]
  - Pain [None]
  - Confusional state [None]
  - Attention deficit/hyperactivity disorder [None]
  - Condition aggravated [None]
  - Nausea [None]
  - Antisocial behaviour [None]
  - Social avoidant behaviour [None]
  - Apathy [None]
  - Product substitution issue [None]

NARRATIVE: CASE EVENT DATE: 20150122
